FAERS Safety Report 21628925 (Version 1)
Quarter: 2022Q4

REPORT INFORMATION
  Report Type: Spontaneous
  Country: US (occurrence: None)
  Receive Date: 20221122
  Receipt Date: 20221122
  Transmission Date: 20230113
  Serious: Yes (unspecified)
  Sender: FDA-Public Use
  Company Number: None

PATIENT
  Age: 53 Year
  Sex: Female

DRUGS (2)
  1. BESREMI [Suspect]
     Active Substance: ROPEGINTERFERON ALFA-2B-NJFT
  2. BESREMI [Concomitant]
     Active Substance: ROPEGINTERFERON ALFA-2B-NJFT
     Dates: start: 20220321

REACTIONS (1)
  - Hypertriglyceridaemia [None]
